FAERS Safety Report 4278987-X (Version None)
Quarter: 2004Q1

REPORT INFORMATION
  Report Type: 
  Country: None (occurrence: None)
  Receive Date: 20040126
  Receipt Date: 20031009
  Transmission Date: 20041129
  Serious: Yes (Hospitalization, Other)
  Sender: FDA-Public Use
  Company Number: WAES 0310USA01297

PATIENT
  Age: 54 Year
  Sex: Female
  Weight: 108 kg

DRUGS (9)
  1. AMITRIPTYLINE HYDROCHLORIDE [Concomitant]
     Indication: INSOMNIA
  2. ANALGESIC OR ANESTHETIC (UNSPECIFIED) [Concomitant]
     Indication: PAIN
  3. ATENOLOL [Concomitant]
  4. LIPITOR [Concomitant]
     Indication: BLOOD CHOLESTEROL INCREASED
     Dates: start: 19990310, end: 20021201
  5. PREMARIN [Concomitant]
     Indication: HORMONE REPLACEMENT THERAPY
     Dates: start: 19970101, end: 20020701
  6. HYDRODIURIL [Concomitant]
     Route: 048
  7. ALTACE [Concomitant]
     Indication: HYPERTENSION
     Dates: start: 20000101, end: 20020601
  8. VIOXX [Suspect]
     Indication: ARTHRITIS
     Route: 048
     Dates: start: 20010701, end: 20020301
  9. ZOLOFT [Concomitant]
     Indication: DEPRESSION
     Dates: start: 19991027, end: 20010404

REACTIONS (19)
  - ANXIETY [None]
  - AORTIC VALVE INCOMPETENCE [None]
  - CARDIAC DISORDER [None]
  - CARPAL TUNNEL SYNDROME [None]
  - CEREBRAL ISCHAEMIA [None]
  - CRYING [None]
  - DECREASED APPETITE [None]
  - DEPRESSION [None]
  - HEADACHE [None]
  - INSOMNIA [None]
  - LACUNAR INFARCTION [None]
  - MITRAL VALVE INCOMPETENCE [None]
  - MUSCLE CRAMP [None]
  - OBESITY [None]
  - OSTEOARTHRITIS [None]
  - PERIPHERAL VASCULAR DISORDER [None]
  - TREATMENT NONCOMPLIANCE [None]
  - TRICUSPID VALVE INCOMPETENCE [None]
  - WEIGHT INCREASED [None]
